FAERS Safety Report 9913020 (Version 1)
Quarter: 2014Q1

REPORT INFORMATION
  Report Type: Spontaneous
  Country: US (occurrence: None)
  Receive Date: 20140218
  Receipt Date: 20140218
  Transmission Date: 20141002
  Serious: Yes (Other)
  Sender: FDA-Public Use
  Company Number: None

PATIENT
  Age: 57 Year
  Sex: Male
  Weight: 113.4 kg

DRUGS (1)
  1. ONGLYZA [Suspect]
     Indication: TYPE 2 DIABETES MELLITUS
     Dosage: 1 ONCE DAILY
     Route: 048
     Dates: start: 20131126

REACTIONS (5)
  - Discomfort [None]
  - Chest pain [None]
  - Chest discomfort [None]
  - Fatigue [None]
  - Condition aggravated [None]
